FAERS Safety Report 11518844 (Version 3)
Quarter: 2015Q4

REPORT INFORMATION
  Report Type: Spontaneous
  Country: US (occurrence: US)
  Receive Date: 20150917
  Receipt Date: 20151202
  Transmission Date: 20160304
  Serious: Yes (Other)
  Sender: FDA-Public Use
  Company Number: US-PFIZER INC-2015307564

PATIENT
  Age: 39 Year
  Sex: Female
  Weight: 60.5 kg

DRUGS (3)
  1. ALDACTONE [Suspect]
     Active Substance: SPIRONOLACTONE
     Indication: VENOOCCLUSIVE LIVER DISEASE
     Dosage: UNK
     Dates: start: 201505
  2. ACTIGALL [Suspect]
     Active Substance: URSODIOL
     Indication: VENOOCCLUSIVE LIVER DISEASE
     Dosage: UNK
     Dates: start: 201505
  3. LASIX [Suspect]
     Active Substance: FUROSEMIDE
     Indication: VENOOCCLUSIVE LIVER DISEASE
     Dosage: UNK
     Dates: start: 201505

REACTIONS (3)
  - Drug ineffective [Unknown]
  - Ascites [Unknown]
  - Abdominal pain [Unknown]
